FAERS Safety Report 10369024 (Version 1)
Quarter: 2014Q1

REPORT INFORMATION
  Report Type: Spontaneous
  Country: US (occurrence: None)
  Receive Date: 20140306
  Receipt Date: 20140306
  Transmission Date: 20141002
  Serious: Yes (Hospitalization)
  Sender: FDA-Public Use
  Company Number: 163-21880-13023103

PATIENT
  Age: 78 Year
  Sex: Male

DRUGS (12)
  1. REVLIMID (LENALIDOMIDE) (25 MILLIGRAM, CAPSULES) [Suspect]
     Indication: PLASMA CELL MYELOMA
     Dosage: 25 MG, 1 IN 1 D, PO  09/01/2012 - UNKNOWN THERAPY DATES
     Route: 048
     Dates: start: 20120901
  2. ALLOPURINOL [Concomitant]
  3. FUROSEMIDE [Concomitant]
  4. METOPROLOL [Concomitant]
  5. METOPROLOL TARTRATE [Concomitant]
  6. MIRALAX (MACROGOL) [Concomitant]
  7. MORPHINE SULFATE [Concomitant]
  8. MULTIVITAMINS [Concomitant]
  9. OCUVITE [Concomitant]
  10. OXYCODONE HCL (OXYCODONE HYDROCHLORIDE) [Concomitant]
  11. PROTONIX [Concomitant]
  12. SIMVASTATIN [Concomitant]

REACTIONS (1)
  - Platelet count decreased [None]
